FAERS Safety Report 20664722 (Version 1)
Quarter: 2022Q2

REPORT INFORMATION
  Report Type: Report from Study
  Country: CA (occurrence: CA)
  Receive Date: 20220401
  Receipt Date: 20220401
  Transmission Date: 20220721
  Serious: Yes (Other)
  Sender: FDA-Public Use
  Company Number: CA-AMGEN-CANSL2022021617

PATIENT
  Age: 56 Year
  Sex: Female

DRUGS (2)
  1. AVSOLA [Suspect]
     Active Substance: INFLIXIMAB-AXXQ
     Indication: Crohn^s disease
     Dosage: 5 MILLIGRAM/KILOGRAM, Q6WK
     Route: 065
     Dates: start: 20220204
  2. AVSOLA [Suspect]
     Active Substance: INFLIXIMAB-AXXQ
     Dosage: 5 MILLIGRAM/KILOGRAM, Q6WK
     Route: 065
     Dates: end: 20220322

REACTIONS (4)
  - Angioedema [Unknown]
  - Ear pruritus [Recovering/Resolving]
  - Pruritus [Unknown]
  - Off label use [Unknown]
